FAERS Safety Report 9620721 (Version 1)
Quarter: 2013Q4

REPORT INFORMATION
  Report Type: Spontaneous
  Country: US (occurrence: US)
  Receive Date: 20131015
  Receipt Date: 20131015
  Transmission Date: 20140711
  Serious: No
  Sender: FDA-Public Use
  Company Number: US-BIOGENIDEC-2013BI097132

PATIENT
  Sex: Female

DRUGS (11)
  1. AVONEX [Suspect]
     Indication: MULTIPLE SCLEROSIS
     Route: 030
     Dates: start: 20090206
  2. AVONEX [Suspect]
     Indication: MULTIPLE SCLEROSIS
     Route: 030
  3. ASPIRIN [Concomitant]
  4. AVAPRO [Concomitant]
  5. ISOSORBIDE DIMETHYL ETHER [Concomitant]
  6. LIPITOR [Concomitant]
  7. NAPROXEN [Concomitant]
  8. NITROGLYCERIN CR [Concomitant]
  9. PROTONIX [Concomitant]
  10. TAMOXIFEN CITRATE [Concomitant]
  11. VERAPAMIL HCL CR [Concomitant]

REACTIONS (1)
  - Sciatica [Unknown]
